FAERS Safety Report 4844903-2 (Version None)
Quarter: 2005Q4

REPORT INFORMATION
  Report Type: 
  Country: None (occurrence: None)
  Receive Date: 20051128
  Receipt Date: 20051115
  Transmission Date: 20060501
  Serious: Yes (Other)
  Sender: FDA-Public Use
  Company Number: 2005155869

PATIENT
  Sex: 0

DRUGS (1)
  1. VFEND [Suspect]
     Indication: ILL-DEFINED DISORDER

REACTIONS (1)
  - MUCORMYCOSIS [None]
